FAERS Safety Report 6852097-7 (Version None)
Quarter: 2010Q3

REPORT INFORMATION
  Report Type: 
  Country: None (occurrence: None)
  Receive Date: 20100717
  Receipt Date: 20071105
  Transmission Date: 20110219
  Serious: No
  Sender: FDA-Public Use
  Company Number: US-PFIZER INC-2007094173

PATIENT
  Sex: Female
  Weight: 54.9 kg

DRUGS (7)
  1. CHANTIX [Suspect]
     Indication: SMOKING CESSATION THERAPY
     Dates: start: 20071103
  2. SERTRALINE HCL [Concomitant]
  3. CENTRUM SILVER [Concomitant]
  4. CALCIUM WITH VITAMIN D [Concomitant]
  5. VITAMIN B COMPLEX CAP [Concomitant]
  6. DIAZEPAM [Concomitant]
     Indication: ANXIETY
  7. ALEVE (CAPLET) [Concomitant]
     Indication: ARTHRITIS

REACTIONS (7)
  - ABDOMINAL DISCOMFORT [None]
  - ABDOMINAL PAIN UPPER [None]
  - DIARRHOEA [None]
  - DIZZINESS [None]
  - ERUCTATION [None]
  - FLATULENCE [None]
  - HEADACHE [None]
